FAERS Safety Report 5680522-6 (Version None)
Quarter: 2008Q1

REPORT INFORMATION
  Report Type: 
  Country: None (occurrence: None)
  Receive Date: 20080326
  Receipt Date: 20080319
  Transmission Date: 20080703
  Serious: Yes (Other)
  Sender: FDA-Public Use
  Company Number: US-ASTRAZENECA-2008UW05642

PATIENT
  Age: 80 Year
  Sex: Male
  Weight: 63.1 kg

DRUGS (4)
  1. CRESTOR [Suspect]
     Indication: BLOOD CHOLESTEROL INCREASED
     Route: 048
     Dates: start: 20070901
  2. PRESERVISION [Concomitant]
  3. GLUCOSE [Concomitant]
  4. ASPIRIN [Concomitant]

REACTIONS (1)
  - RETINAL HAEMORRHAGE [None]
